FAERS Safety Report 7913296-6 (Version None)
Quarter: 2011Q4

REPORT INFORMATION
  Report Type: 
  Country: None (occurrence: None)
  Receive Date: 20111114
  Receipt Date: 20111103
  Transmission Date: 20120403
  Serious: Yes (Hospitalization)
  Sender: FDA-Public Use
  Company Number: FR-ASTRAZENECA-2011SE66585

PATIENT
  Age: 74 Year
  Sex: Female

DRUGS (2)
  1. NAROPIN [Suspect]
     Route: 050
     Dates: start: 20111017, end: 20111017
  2. ANTIHYPERTENSIVE DRUG [Concomitant]
     Indication: HYPERTENSION

REACTIONS (2)
  - GRAND MAL CONVULSION [None]
  - DIPLOPIA [None]
